FAERS Safety Report 16660413 (Version 1)
Quarter: 2019Q3

REPORT INFORMATION
  Report Type: Spontaneous
  Country: US (occurrence: US)
  Receive Date: 20190619
  Receipt Date: 20190619
  Transmission Date: 20191004
  Serious: No
  Sender: FDA-Public Use
  Company Number: None

PATIENT
  Age: 71 Year
  Sex: Male

DRUGS (3)
  1. H.P. ACTHAR [Suspect]
     Active Substance: CORTICOTROPIN
     Indication: NASOPHARYNGEAL CANCER
     Dosage: ?          OTHER STRENGTH:80 IU/5ML;?
     Route: 058
     Dates: start: 201902
  2. H.P. ACTHAR [Suspect]
     Active Substance: CORTICOTROPIN
     Indication: INFECTIOUS IRIDOCYCLITIS
     Dosage: ?          OTHER STRENGTH:80 IU/5ML;?
     Route: 058
     Dates: start: 201902
  3. H.P. ACTHAR [Suspect]
     Active Substance: CORTICOTROPIN
     Indication: SYMPATHETIC OPHTHALMIA
     Dosage: ?          OTHER STRENGTH:80 IU/5ML;?
     Route: 058
     Dates: start: 201902

REACTIONS (4)
  - Feeling hot [None]
  - Neuralgia [None]
  - Facial pain [None]
  - Flushing [None]
